FAERS Safety Report 18450692 (Version 1)
Quarter: 2020Q4

REPORT INFORMATION
  Report Type: Other
  Country: JP (occurrence: JP)
  Receive Date: 20201102
  Receipt Date: 20201102
  Transmission Date: 20210114
  Serious: Yes (Other)
  Sender: FDA-Public Use
  Company Number: JP-COREPHARMA LLC-2093499

PATIENT
  Age: 15 Year
  Sex: Male

DRUGS (1)
  1. LISINOPRIL. [Suspect]
     Active Substance: LISINOPRIL
     Indication: HYPERTENSION
     Route: 048

REACTIONS (3)
  - End stage renal disease [Unknown]
  - Therapeutic product effect incomplete [Unknown]
  - Post streptococcal glomerulonephritis [Unknown]
